FAERS Safety Report 9412834 (Version 1)
Quarter: 2013Q3

REPORT INFORMATION
  Report Type: Spontaneous
  Country: DE (occurrence: DE)
  Receive Date: 20130722
  Receipt Date: 20130722
  Transmission Date: 20140515
  Serious: Yes (Congenital Anomaly)
  Sender: FDA-Public Use
  Company Number: GXKR2013DE002423

PATIENT
  Sex: 0

DRUGS (9)
  1. FLUOROURACIL [Suspect]
     Dosage: MATERNAL DOSE: ON 10.AUG./ 31.AUG./ 21SEP.2009
     Route: 064
     Dates: start: 20090810, end: 20090921
  2. ADRIAMYCIN [Suspect]
     Dosage: MATERNAL DOSE: MATERNAL DOSE: ON 10.AUG./ 31.AUG./ 21SEP.2009
     Route: 064
     Dates: start: 20090810, end: 20090921
  3. CYCLOPHOSPHAMID [Suspect]
     Indication: BREAST CANCER
     Dosage: MATERNAL DOSE: ON 10.AUG./ 31.AUG./ 21SEP.2009
     Route: 064
     Dates: start: 20090810, end: 20090921
  4. ARILIN [Concomitant]
     Dosage: MATERNAL DOSE: 1X100 [MG/D ]
     Route: 064
     Dates: start: 20090403, end: 20090410
  5. DOEDERLEIN MED [Concomitant]
     Dosage: MATERNAL DOSE: 1X/DAY FROM WEEK 4+2 ONGOING
     Route: 064
     Dates: start: 20090410
  6. PSORCUTAN BETA [Concomitant]
     Dosage: MATERNAL DOSE: UKN (FIRST TRIMESTER)
     Route: 064
  7. FOLIO [Concomitant]
     Dosage: MATERNAL DOSE: 1X0.4 MG/D - FIRST TRIMESTER
     Route: 064
  8. CEFAZOLIN [Concomitant]
     Dosage: UNK UKN, UNK
     Route: 064
     Dates: start: 20091103, end: 20091104
  9. CYTOTEC [Concomitant]
     Dosage: MATERNAL DOSE: UNK (THIRD TRIMESTER)
     Route: 064

REACTIONS (1)
  - Haemangioma congenital [Unknown]
